FAERS Safety Report 13472658 (Version 24)
Quarter: 2023Q2

REPORT INFORMATION
  Report Type: Spontaneous
  Country: IN (occurrence: IN)
  Receive Date: 20170424
  Receipt Date: 20230508
  Transmission Date: 20230721
  Serious: Yes (Life-Threatening, Other)
  Sender: FDA-Public Use
  Company Number: IN-PFIZER INC-2017171323

PATIENT
  Age: 75 Year
  Sex: Female

DRUGS (18)
  1. PALBOCICLIB [Suspect]
     Active Substance: PALBOCICLIB
     Indication: Breast cancer metastatic
     Dosage: 125 MG, 1X/DAY
     Route: 048
     Dates: start: 20170210, end: 20171223
  2. PALBOCICLIB [Suspect]
     Active Substance: PALBOCICLIB
     Dosage: 100 MG, 1X/DAY
  3. PALBOCICLIB [Suspect]
     Active Substance: PALBOCICLIB
     Dosage: 125 MG, UNK
  4. PALBOCICLIB [Suspect]
     Active Substance: PALBOCICLIB
     Dosage: 100 MG, 1X/DAY
     Route: 048
  5. PALBOCICLIB [Suspect]
     Active Substance: PALBOCICLIB
     Dosage: 75 MG, 1X/DAY
     Route: 048
     Dates: start: 20210724
  6. PALBOCICLIB [Suspect]
     Active Substance: PALBOCICLIB
     Indication: Breast cancer metastatic
     Dosage: 125 MG, CYCLIC (OD, 21/30 DAYS FOR 6 MONTH)
  7. PALBOCICLIB [Suspect]
     Active Substance: PALBOCICLIB
     Dosage: 75 MG, CYCLIC
     Route: 048
  8. PALBOCICLIB [Suspect]
     Active Substance: PALBOCICLIB
     Dosage: 75 MG, 1X/DAY
     Route: 048
  9. PALBOCICLIB [Suspect]
     Active Substance: PALBOCICLIB
     Dosage: 75 MG, 1X/DAY (DAILY X 21 DAYS/30 DAYS X 6 MONTHS)
     Route: 048
  10. LETROZOLE [Concomitant]
     Active Substance: LETROZOLE
     Indication: Breast cancer metastatic
     Dosage: UNK
  11. CALCIUM [Concomitant]
     Active Substance: CALCIUM
     Dosage: UNK, DAILY (11 DAILY X 6 MONTHS)
  12. IRON [Concomitant]
     Active Substance: IRON
     Dosage: UNK
  13. VITAMIN D3 [Concomitant]
     Active Substance: CHOLECALCIFEROL
     Dosage: UNK
  14. ANASTROZOLE [Concomitant]
     Active Substance: ANASTROZOLE
     Dosage: UNK
  15. ZOLEDRONIC ACID [Concomitant]
     Active Substance: ZOLEDRONIC ACID
     Dosage: UNK
  16. CALCIUM CARBONATE\CHOLECALCIFEROL [Concomitant]
     Active Substance: CALCIUM CARBONATE\CHOLECALCIFEROL
     Dosage: UNK
  17. FEMARA [Concomitant]
     Active Substance: LETROZOLE
     Dosage: 2.5 MG, DAILY (1 DAILY X 6 MONTHS)
  18. XGEVA [Concomitant]
     Active Substance: DENOSUMAB
     Dosage: 120 MG (120 MCG, EVERY 3 MONTHLY X 6 MONTHS)
     Route: 058

REACTIONS (24)
  - Pyrexia [Not Recovered/Not Resolved]
  - Cough [Not Recovered/Not Resolved]
  - Femur fracture [Unknown]
  - Pancytopenia [Not Recovered/Not Resolved]
  - Eye operation [Unknown]
  - Platelet count decreased [Unknown]
  - Neoplasm progression [Unknown]
  - Back pain [Recovering/Resolving]
  - Neck pain [Recovering/Resolving]
  - Arthralgia [Recovering/Resolving]
  - Mouth ulceration [Unknown]
  - Dry mouth [Unknown]
  - Dry skin [Unknown]
  - Lip dry [Unknown]
  - Hypersensitivity [Unknown]
  - Eye disorder [Unknown]
  - Lacrimation increased [Unknown]
  - Skin disorder [Unknown]
  - Haemoglobin decreased [Unknown]
  - Urinary tract infection [Unknown]
  - Product use issue [Unknown]
  - Inappropriate schedule of product administration [Unknown]
  - Off label use [Unknown]
  - Product use issue [Unknown]

NARRATIVE: CASE EVENT DATE: 20220304
